FAERS Safety Report 4449851-8 (Version None)
Quarter: 2004Q3

REPORT INFORMATION
  Report Type: 
  Country: None (occurrence: None)
  Receive Date: 20040803
  Receipt Date: 20040429
  Transmission Date: 20050211
  Serious: Yes (Hospitalization)
  Sender: FDA-Public Use
  Company Number: CERZ-10565

PATIENT
  Age: 53 Year
  Sex: Female

DRUGS (1)
  1. CEREZYME [Suspect]
     Indication: GAUCHER'S DISEASE
     Dosage: 4000 UNITS Q2WKS IV
     Route: 042
     Dates: start: 20010501

REACTIONS (2)
  - BLOOD PRESSURE DECREASED [None]
  - PNEUMONIA [None]
